FAERS Safety Report 5572637-8 (Version None)
Quarter: 2007Q4

REPORT INFORMATION
  Report Type: 
  Country: None (occurrence: None)
  Receive Date: 20071130
  Receipt Date: 20070205
  Transmission Date: 20080405
  Serious: Yes (Disabling)
  Sender: FDA-Public Use
  Company Number: WAES 0607USA04091

PATIENT
  Age: 72 Year
  Sex: Female
  Weight: 74.3899 kg

DRUGS (6)
  1. FOSAMAX [Suspect]
     Dosage: 70 MG WKY PO
     Route: 048
     Dates: end: 20060701
  2. LEVOXYL [Concomitant]
  3. LIPITOR [Concomitant]
  4. NAPROSYN [Concomitant]
  5. ULTRAM [Concomitant]
  6. CYCLOBENZAPRINE HCL [Concomitant]

REACTIONS (1)
  - OSTEONECROSIS [None]
